FAERS Safety Report 18543020 (Version 1)
Quarter: 2020Q4

REPORT INFORMATION
  Report Type: Spontaneous
  Country: FR (occurrence: FR)
  Receive Date: 20201124
  Receipt Date: 20201124
  Transmission Date: 20210114
  Serious: Yes (Hospitalization)
  Sender: FDA-Public Use
  Company Number: FR-009507513-2011FRA011796

PATIENT
  Age: 59 Year
  Sex: Female
  Weight: 70 kg

DRUGS (8)
  1. ONDANSETRON [Concomitant]
     Active Substance: ONDANSETRON
  2. KEYTRUDA [Suspect]
     Active Substance: PEMBROLIZUMAB
     Indication: LUNG NEOPLASM MALIGNANT
     Dosage: 200 MILLIGRAM, CYCLICAL
     Route: 042
     Dates: start: 20200902, end: 20200923
  3. RANITIDINE HYDROCHLORIDE. [Concomitant]
     Active Substance: RANITIDINE HYDROCHLORIDE
  4. CARBOPLATIN. [Suspect]
     Active Substance: CARBOPLATIN
     Indication: LUNG NEOPLASM MALIGNANT
     Dosage: 735 MILLIGRAM, CYCLICAL
     Route: 042
     Dates: start: 20200902
  5. SOLU-MEDROL [Concomitant]
     Active Substance: METHYLPREDNISOLONE SODIUM SUCCINATE
  6. PACLITAXEL. [Suspect]
     Active Substance: PACLITAXEL
     Indication: LUNG NEOPLASM MALIGNANT
     Dosage: 344 MILLIGRAM, CYCLICAL
     Route: 042
     Dates: start: 20200902
  7. POLARAMINE (DEXCHLORPHENIRAMINE MALEATE (+) GUAIFENESIN (+) PSEUDOEPHE [Concomitant]
  8. EMEND [Concomitant]
     Active Substance: APREPITANT

REACTIONS (2)
  - Hepatitis [Recovering/Resolving]
  - Antinuclear antibody [Recovering/Resolving]

NARRATIVE: CASE EVENT DATE: 20201014
